FAERS Safety Report 7073618-8 (Version None)
Quarter: 2010Q4

REPORT INFORMATION
  Report Type: 
  Country: None (occurrence: None)
  Receive Date: 20101029
  Receipt Date: 20100830
  Transmission Date: 20110411
  Serious: Yes (Hospitalization)
  Sender: FDA-Public Use
  Company Number: A0871171A

PATIENT
  Age: 60 Year
  Sex: Female

DRUGS (10)
  1. ADVAIR DISKUS 100/50 [Suspect]
     Indication: ASTHMA
     Dosage: 1PUFF TWICE PER DAY
     Route: 055
     Dates: start: 20010101
  2. SINGULAIR [Concomitant]
  3. NEURONTIN [Concomitant]
  4. NORVASC [Concomitant]
  5. ATIVAN [Concomitant]
  6. PREDNISOLONE [Concomitant]
  7. BENTYL [Concomitant]
  8. PREVACID [Concomitant]
  9. VENTOLIN HFA [Concomitant]
  10. CONCURRENT MEDICATIONS [Concomitant]

REACTIONS (3)
  - DYSPNOEA [None]
  - PNEUMONIA [None]
  - PRODUCT QUALITY ISSUE [None]
